FAERS Safety Report 8494556-X (Version None)
Quarter: 2012Q3

REPORT INFORMATION
  Report Type: 
  Country: None (occurrence: None)
  Receive Date: 20120709
  Receipt Date: 20120703
  Transmission Date: 20120928
  Serious: Yes (Other)
  Sender: FDA-Public Use
  Company Number: PHHY2012CA015039

PATIENT
  Sex: Female

DRUGS (2)
  1. SANDOSTATIN LAR [Suspect]
     Dosage: 20 MG, EVERY 4 WEEKS
     Route: 030
     Dates: start: 20110210
  2. SANDOSTATIN LAR [Suspect]
     Indication: PANCREATITIS CHRONIC
     Dosage: 20 MG, QMO
     Route: 030
     Dates: start: 20110210

REACTIONS (11)
  - NAUSEA [None]
  - FALL [None]
  - OPEN WOUND [None]
  - DYSPHAGIA [None]
  - HAEMORRHAGE [None]
  - MUSCULOSKELETAL CHEST PAIN [None]
  - GASTRIC ULCER [None]
  - DYSPNOEA [None]
  - HYPOKINESIA [None]
  - OEDEMA PERIPHERAL [None]
  - DIARRHOEA [None]
